FAERS Safety Report 18132293 (Version 3)
Quarter: 2020Q3

REPORT INFORMATION
  Report Type: Spontaneous
  Country: US (occurrence: US)
  Receive Date: 20200811
  Receipt Date: 20200915
  Transmission Date: 20201103
  Serious: No
  Sender: FDA-Public Use
  Company Number: US-ASTRAZENECA-2020SE97555

PATIENT
  Age: 3359 Week
  Sex: Female
  Weight: 145.2 kg

DRUGS (3)
  1. GLIPIZIDE. [Concomitant]
     Active Substance: GLIPIZIDE
     Indication: DIABETES MELLITUS
     Route: 048
  2. METFORMIN [Concomitant]
     Active Substance: METFORMIN HYDROCHLORIDE
     Indication: DIABETES MELLITUS
     Route: 048
  3. BYDUREON BCISE [Suspect]
     Active Substance: EXENATIDE
     Indication: TYPE 2 DIABETES MELLITUS
     Route: 058
     Dates: start: 202005

REACTIONS (6)
  - Injection site extravasation [Unknown]
  - Injection site bruising [Recovered/Resolved]
  - Device failure [Unknown]
  - Injection site haemorrhage [Recovered/Resolved]
  - Drug dose omission by device [Unknown]
  - Device defective [Unknown]

NARRATIVE: CASE EVENT DATE: 20200711
